FAERS Safety Report 6942508-0 (Version None)
Quarter: 2010Q3

REPORT INFORMATION
  Report Type: 
  Country: None (occurrence: None)
  Receive Date: 20100826
  Receipt Date: 20100819
  Transmission Date: 20110219
  Serious: Yes (Hospitalization, Other)
  Sender: FDA-Public Use
  Company Number: FR-ELI_LILLY_AND_COMPANY-FR200912003914

PATIENT
  Sex: Male

DRUGS (16)
  1. BYETTA [Suspect]
     Indication: TYPE 2 DIABETES MELLITUS
     Dosage: 10 UG, 2/D
     Route: 058
     Dates: end: 20091114
  2. METFORMIN HCL [Concomitant]
     Dosage: UNK, UNKNOWN
  3. SULFAMIDE [Concomitant]
     Dosage: UNK, UNKNOWN
  4. KEPPRA [Concomitant]
     Dosage: 2 D/F, 2/D
     Route: 048
  5. TAHOR [Concomitant]
     Dosage: UNK, UNKNOWN
  6. PREVISCAN [Concomitant]
     Dosage: 0.75 D/F, DAILY (1/D)
     Route: 048
     Dates: end: 20091114
  7. GLUCOR [Concomitant]
     Dosage: 3 D/F, DAILY (1/D)
     Route: 048
     Dates: end: 20091114
  8. GLICLAZIDE [Concomitant]
     Dosage: 3 D/F, DAILY (1/D)
     Route: 048
  9. FUROSEMIDE [Concomitant]
     Dosage: 40 MG, DAILY (1/D)
     Route: 048
  10. AMIODARONE [Concomitant]
     Dosage: 1 D/F, DAILY (1/D)
     Route: 048
  11. TAREG [Concomitant]
     Dosage: 1 D/F, DAILY (1/D)
     Route: 047
  12. GABAPENTINE [Concomitant]
     Dosage: 2 D/F, DAILY (1/D)
     Route: 048
  13. HEPARIN [Concomitant]
     Dates: start: 20091114
  14. LOVENOX [Concomitant]
  15. LANTUS [Concomitant]
     Dates: start: 20091114
  16. NOVORAPID [Concomitant]
     Dates: start: 20091114

REACTIONS (6)
  - CHOLELITHIASIS [None]
  - HEPATIC STEATOSIS [None]
  - INFLAMMATION [None]
  - MIXED LIVER INJURY [None]
  - PANCREATITIS ACUTE [None]
  - RENAL FAILURE [None]
